FAERS Safety Report 20199067 (Version 1)
Quarter: 2021Q4

REPORT INFORMATION
  Report Type: Spontaneous
  Country: US (occurrence: US)
  Receive Date: 20211217
  Receipt Date: 20211217
  Transmission Date: 20220303
  Serious: No
  Sender: FDA-Public Use
  Company Number: US-BAYER-2021A266520

PATIENT
  Age: 79 Year
  Sex: Female

DRUGS (2)
  1. MIRALAX [Suspect]
     Active Substance: POLYETHYLENE GLYCOL 3350
     Indication: Gastrointestinal disorder
     Dosage: 1 DF, QD
     Route: 048
     Dates: start: 202111
  2. GABAPENTIN [Concomitant]
     Active Substance: GABAPENTIN

REACTIONS (4)
  - Anal incontinence [Unknown]
  - Faecal volume decreased [Unknown]
  - Incorrect product administration duration [None]
  - Expired product administered [None]

NARRATIVE: CASE EVENT DATE: 20210101
